FAERS Safety Report 14486480 (Version 1)
Quarter: 2018Q1

REPORT INFORMATION
  Report Type: Spontaneous
  Country: US (occurrence: US)
  Receive Date: 20180205
  Receipt Date: 20180205
  Transmission Date: 20180509
  Serious: Yes (Other)
  Sender: FDA-Public Use
  Company Number: US-AMNEAL PHARMACEUTICALS-2018AMN00056

PATIENT
  Sex: Female
  Weight: 40.36 kg

DRUGS (4)
  1. NASONEX [Concomitant]
     Active Substance: MOMETASONE FUROATE
  2. HYDROCODONE AND ACETAMINOPHEN [Suspect]
     Active Substance: ACETAMINOPHEN\HYDROCODONE
     Dosage: 1 TABLETS, 4X/DAY
     Dates: start: 20171218
  3. FIORICET [Concomitant]
     Active Substance: ACETAMINOPHEN\BUTALBITAL\CAFFEINE
  4. NASACORT [Concomitant]
     Active Substance: TRIAMCINOLONE ACETONIDE

REACTIONS (11)
  - Headache [Unknown]
  - Confusional state [Unknown]
  - Drug ineffective [Unknown]
  - Adverse reaction [Unknown]
  - Blood pressure increased [Recovered/Resolved]
  - Intentional overdose [Recovered/Resolved]
  - Palpitations [Unknown]
  - Nausea [Unknown]
  - Abdominal pain upper [Unknown]
  - Withdrawal syndrome [Unknown]
  - Choking sensation [Recovered/Resolved]
